FAERS Safety Report 9732723 (Version 1)
Quarter: 2013Q4

REPORT INFORMATION
  Report Type: Spontaneous
  Country: JP (occurrence: JP)
  Receive Date: 20131205
  Receipt Date: 20131205
  Transmission Date: 20140711
  Serious: No
  Sender: FDA-Public Use
  Company Number: JP-GE HEALTHCARE MEDICAL DIAGNOSTICS-MSTR-PR-1312S-0034

PATIENT
  Age: 74 Year
  Sex: Male

DRUGS (3)
  1. METASTRON [Suspect]
     Indication: METASTATIC PAIN
     Route: 042
     Dates: start: 20130830, end: 20130830
  2. METASTRON [Suspect]
     Indication: DIAGNOSTIC PROCEDURE
  3. ZOMETA [Concomitant]

REACTIONS (1)
  - Blood sodium decreased [Recovered/Resolved]
